FAERS Safety Report 19073162 (Version 1)
Quarter: 2021Q1

REPORT INFORMATION
  Report Type: Spontaneous
  Country: US (occurrence: US)
  Receive Date: 20210330
  Receipt Date: 20210330
  Transmission Date: 20210420
  Serious: Yes (Hospitalization)
  Sender: FDA-Public Use
  Company Number: None

PATIENT
  Age: 60 Year
  Sex: Female

DRUGS (14)
  1. OMEPRAZOLE. [Concomitant]
     Active Substance: OMEPRAZOLE
     Dates: start: 20210317
  2. DIPHEN/ATROP [Concomitant]
     Active Substance: ATROPINE SULFATE\DIPHENOXYLATE
  3. HYDROXYCHLOR [Concomitant]
     Active Substance: HYDROXYCHLOROQUINE
     Dates: start: 20201011
  4. VITAMIN D [Concomitant]
     Active Substance: VITAMIN D NOS
  5. CIMZIA [Suspect]
     Active Substance: CERTOLIZUMAB PEGOL
     Indication: VITAMIN D DEFICIENCY
     Route: 058
     Dates: start: 20200824, end: 20210329
  6. INSULIN LISP LNJ [Concomitant]
     Dates: start: 20210127
  7. POT CHLORIDE [Concomitant]
     Active Substance: POTASSIUM CHLORIDE
     Dates: start: 20210203
  8. \FITAMIN D3 [Concomitant]
     Dates: start: 20210224
  9. CIMZIA [Suspect]
     Active Substance: CERTOLIZUMAB PEGOL
     Indication: MALNUTRITION
     Route: 058
     Dates: start: 20200824, end: 20210329
  10. FLUTICASONE. [Concomitant]
     Active Substance: FLUTICASONE
     Dates: start: 20201019
  11. ESTRADIOL. [Concomitant]
     Active Substance: ESTRADIOL
     Dates: start: 20210310
  12. PROMETHAZINE [Concomitant]
     Active Substance: PROMETHAZINE HYDROCHLORIDE
     Dates: start: 20210216
  13. CYANOCOBALAM [Concomitant]
     Active Substance: CYANOCOBALAMIN
     Dates: start: 20201217
  14. TIZANIDINE. [Concomitant]
     Active Substance: TIZANIDINE
     Dates: start: 20210311

REACTIONS (1)
  - Nephropathy [None]

NARRATIVE: CASE EVENT DATE: 20210329
